FAERS Safety Report 4338002-6 (Version None)
Quarter: 2004Q2

REPORT INFORMATION
  Report Type: 
  Country: None (occurrence: None)
  Receive Date: 20040408
  Receipt Date: 20040331
  Transmission Date: 20050107
  Serious: Yes (Hospitalization)
  Sender: FDA-Public Use
  Company Number: STA-AE-04-MTX-068

PATIENT
  Age: 60 Year
  Sex: Male

DRUGS (8)
  1. RHEUMATREX [Suspect]
     Indication: RHEUMATOID ARTHRITIS
     Dosage: 2.5 MG 1X PER 1 WK, ORAL
     Route: 048
     Dates: start: 19981201, end: 19990101
  2. RHEUMATREX [Suspect]
     Indication: RHEUMATOID ARTHRITIS
     Dosage: 7.5 MG 1X PER 1 WK, ORAL
     Route: 048
     Dates: start: 19990319, end: 19991120
  3. RHEUMATREX [Suspect]
     Indication: RHEUMATOID ARTHRITIS
     Dosage: 6 MG 1X PER WK, ORAL
     Route: 048
     Dates: start: 20010124, end: 20030621
  4. RIMATIL (BUCILLAMINE) [Concomitant]
  5. PREDNISOLONE [Concomitant]
  6. VOLTAREN [Concomitant]
  7. SELBEX (TEPRENONE) [Concomitant]
  8. FOLIAMIN (FOLIC ACID) [Concomitant]

REACTIONS (7)
  - COUGH [None]
  - DIFFUSE LARGE B-CELL LYMPHOMA [None]
  - DYSPNOEA EXERTIONAL [None]
  - GASTRIC ULCER [None]
  - LIVER DISORDER [None]
  - PLEURAL EFFUSION [None]
  - PRODUCTIVE COUGH [None]
